FAERS Safety Report 25222867 (Version 1)
Quarter: 2025Q2

REPORT INFORMATION
  Report Type: Report from Study
  Country: IN (occurrence: IN)
  Receive Date: 20250422
  Receipt Date: 20250422
  Transmission Date: 20250717
  Serious: Yes (Other)
  Sender: CIPLA
  Company Number: IN-CIPLA LTD.-2025IN03794

PATIENT

DRUGS (5)
  1. METOPROLOL SUCCINATE [Suspect]
     Active Substance: METOPROLOL SUCCINATE
     Indication: Blood pressure abnormal
     Route: 048
     Dates: start: 202412, end: 20250324
  2. DAPAGLIFLOZIN PROPANEDIOL\METFORMIN HYDROCHLORIDE\SITAGLIPTIN PHOSPHAT [Suspect]
     Active Substance: DAPAGLIFLOZIN PROPANEDIOL\METFORMIN HYDROCHLORIDE\SITAGLIPTIN PHOSPHATE
     Indication: Blood glucose abnormal
     Route: 048
     Dates: start: 202412
  3. ASPIRIN\ATORVASTATIN [Concomitant]
     Active Substance: ASPIRIN\ATORVASTATIN
     Indication: Product used for unknown indication
     Route: 065
  4. ARNIV [Concomitant]
     Indication: Product used for unknown indication
     Route: 065
  5. DYAMIDE PLUS [Concomitant]
     Indication: Product used for unknown indication
     Route: 065

REACTIONS (4)
  - Haematochezia [Unknown]
  - Dyschezia [Not Recovered/Not Resolved]
  - Dizziness postural [Not Recovered/Not Resolved]
  - Flatulence [Recovered/Resolved]

NARRATIVE: CASE EVENT DATE: 20241201
